FAERS Safety Report 5446819-X (Version None)
Quarter: 2007Q3

REPORT INFORMATION
  Report Type: 
  Country: None (occurrence: None)
  Receive Date: 20070907
  Receipt Date: 20070829
  Transmission Date: 20080115
  Serious: Yes (Hospitalization, Other)
  Sender: FDA-Public Use
  Company Number: JP-PFIZER INC-2007072505

PATIENT
  Age: 30 Year
  Sex: Male

DRUGS (7)
  1. SOLU-MEDROL [Suspect]
     Indication: IMMUNOSUPPRESSION
     Dosage: DAILY DOSE:1GRAM
     Route: 042
  2. SOLU-MEDROL [Suspect]
     Indication: PROPHYLAXIS AGAINST TRANSPLANT REJECTION
  3. MEDROL [Suspect]
     Indication: IMMUNOSUPPRESSION
     Dosage: DAILY DOSE:4MG
     Route: 048
  4. MEDROL [Suspect]
     Indication: PROPHYLAXIS AGAINST TRANSPLANT REJECTION
  5. BASILIXIMAB [Concomitant]
  6. TACROLIMUS [Concomitant]
  7. MYCOPHENOLATE MOFETIL [Concomitant]

REACTIONS (3)
  - CYTOMEGALOVIRUS ANTIGEN POSITIVE [None]
  - KIDNEY TRANSPLANT REJECTION [None]
  - POLYOMAVIRUS-ASSOCIATED NEPHROPATHY [None]
